FAERS Safety Report 9832975 (Version 1)
Quarter: 2014Q1

REPORT INFORMATION
  Report Type: Spontaneous
  Country: US (occurrence: US)
  Receive Date: 20140121
  Receipt Date: 20140121
  Transmission Date: 20141002
  Serious: Yes (Hospitalization, Other)
  Sender: FDA-Public Use
  Company Number: CHPA2014US000921

PATIENT
  Sex: 0

DRUGS (1)
  1. TRIAMINIC UNKNOWN [Suspect]
     Dosage: UNK
     Route: 048

REACTIONS (5)
  - Intentional drug misuse [Unknown]
  - Gait disturbance [Unknown]
  - Mania [Unknown]
  - Depression [Unknown]
  - Speech disorder [Unknown]
